FAERS Safety Report 11579741 (Version 1)
Quarter: 2015Q3

REPORT INFORMATION
  Report Type: Spontaneous
  Country: US (occurrence: US)
  Receive Date: 20150916
  Receipt Date: 20150916
  Transmission Date: 20151125
  Serious: No
  Sender: FDA-Public Use
  Company Number: US-ELI_LILLY_AND_COMPANY-US200805004633

PATIENT
  Age: 74 Year
  Sex: Female

DRUGS (4)
  1. FORTEO [Suspect]
     Active Substance: TERIPARATIDE
     Dosage: UNK, UNK
     Dates: start: 200702
  2. TYLENOL PM [Concomitant]
     Active Substance: ACETAMINOPHEN\DIPHENHYDRAMINE
  3. ZOCOR [Concomitant]
     Active Substance: SIMVASTATIN
  4. FORTEO [Suspect]
     Active Substance: TERIPARATIDE
     Dosage: UNK
     Dates: start: 2007

REACTIONS (14)
  - Somnolence [Recovered/Resolved]
  - Sinusitis [Recovered/Resolved]
  - Jaw disorder [Recovered/Resolved with Sequelae]
  - Fall [Recovered/Resolved]
  - Ear pain [Recovered/Resolved]
  - Myalgia [Recovered/Resolved]
  - Deafness unilateral [Not Recovered/Not Resolved]
  - Vertigo [Not Recovered/Not Resolved]
  - Monoclonal gammopathy [Not Recovered/Not Resolved]
  - Ligament sprain [Recovered/Resolved]
  - Joint swelling [Not Recovered/Not Resolved]
  - Pharyngitis [Recovered/Resolved]
  - Mastication disorder [Not Recovered/Not Resolved]
  - Thyroid neoplasm [Not Recovered/Not Resolved]

NARRATIVE: CASE EVENT DATE: 200702
